FAERS Safety Report 4453585-3 (Version None)
Quarter: 2004Q3

REPORT INFORMATION
  Report Type: 
  Country: None (occurrence: None)
  Receive Date: 20040903
  Receipt Date: 20040102
  Transmission Date: 20050211
  Serious: Yes (Hospitalization, Other)
  Sender: FDA-Public Use
  Company Number: 2003188525US

PATIENT
  Age: 39 Year
  Sex: Female
  Weight: 70.3 kg

DRUGS (2)
  1. CYTOTEC [Suspect]
     Dosage: 25 UG, SINGLE
     Dates: start: 20010205, end: 20010205
  2. PITOCIN [Concomitant]

REACTIONS (1)
  - UTERINE RUPTURE [None]
